FAERS Safety Report 8990882 (Version 3)
Quarter: 2013Q1

REPORT INFORMATION
  Report Type: Spontaneous
  Country: JP (occurrence: JP)
  Receive Date: 20121231
  Receipt Date: 20130115
  Transmission Date: 20140127
  Serious: Yes (Other)
  Sender: FDA-Public Use
  Company Number: PHHY2012JP120528

PATIENT
  Age: 80 Year
  Sex: Female

DRUGS (4)
  1. VALSARTAN [Suspect]
  2. RABEPRAZOLE [Suspect]
  3. HEPARIN [Suspect]
  4. ANTIHYPERTENSIVE DRUGS [Concomitant]
     Dosage: UNK

REACTIONS (3)
  - Heparin-induced thrombocytopenia [Unknown]
  - Purpura [Recovering/Resolving]
  - Platelet count decreased [Recovering/Resolving]
